APPROVED DRUG PRODUCT: NORTRIPTYLINE HYDROCHLORIDE
Active Ingredient: NORTRIPTYLINE HYDROCHLORIDE
Strength: EQ 75MG BASE
Dosage Form/Route: CAPSULE;ORAL
Application: A074835 | Product #004
Applicant: AUROBINDO PHARMA LTD
Approved: Jun 30, 1997 | RLD: No | RS: No | Type: DISCN